FAERS Safety Report 25643837 (Version 1)
Quarter: 2025Q3

REPORT INFORMATION
  Report Type: Spontaneous
  Country: US (occurrence: None)
  Receive Date: 20250804
  Receipt Date: 20250804
  Transmission Date: 20251021
  Serious: Yes (Disabling)
  Sender: FDA-CTU
  Company Number: None

PATIENT
  Age: 48 Year
  Sex: Female
  Weight: 56.7 kg

DRUGS (12)
  1. BOTOX [Suspect]
     Active Substance: ONABOTULINUMTOXINA
     Indication: Migraine
     Route: 058
  2. SYNTHROID [Concomitant]
     Active Substance: LEVOTHYROXINE SODIUM
  3. TRELEGY ELLIPTA [Concomitant]
     Active Substance: FLUTICASONE FUROATE\UMECLIDINIUM BROMIDE\VILANTEROL TRIFENATATE
  4. PROAIR HFA [Concomitant]
     Active Substance: ALBUTEROL SULFATE
  5. QULIPTA [Concomitant]
     Active Substance: ATOGEPANT
  6. FAMOTIDINE [Concomitant]
     Active Substance: FAMOTIDINE
  7. CLARITIN [Concomitant]
     Active Substance: LORATADINE
  8. IRON [Concomitant]
     Active Substance: IRON
  9. MAGNESIUM [Concomitant]
     Active Substance: MAGNESIUM
  10. VITAMIN C [Concomitant]
     Active Substance: ASCORBIC ACID
  11. VITAMIN B12 [Concomitant]
     Active Substance: CYANOCOBALAMIN
  12. VITAMINS [Concomitant]
     Active Substance: VITAMINS

REACTIONS (12)
  - Sunburn [None]
  - Blindness unilateral [None]
  - Spinal disorder [None]
  - Cauda equina syndrome [None]
  - Muscular weakness [None]
  - Muscular weakness [None]
  - Facial discomfort [None]
  - Jaw disorder [None]
  - Speech disorder [None]
  - Incontinence [None]
  - Muscle atrophy [None]
  - Walking aid user [None]
